FAERS Safety Report 14567380 (Version 9)
Quarter: 2018Q3

REPORT INFORMATION
  Report Type: Report from Study
  Country: DE (occurrence: DE)
  Receive Date: 20180223
  Receipt Date: 20180815
  Transmission Date: 20181010
  Serious: Yes (Other)
  Sender: FDA-Public Use
  Company Number: DE-TEVA-2018-DE-856603

PATIENT
  Age: 31 Year
  Sex: Male
  Weight: 76 kg

DRUGS (22)
  1. AZITHROBETA [Concomitant]
     Active Substance: AZITHROMYCIN
     Route: 065
  2. CITALOPRAM [Concomitant]
     Active Substance: CITALOPRAM HYDROBROMIDE
     Route: 065
     Dates: start: 20120621, end: 20130601
  3. SUBUTEX [Concomitant]
     Active Substance: BUPRENORPHINE HYDROCHLORIDE
     Indication: PRODUCT USED FOR UNKNOWN INDICATION
     Dosage: UNK
     Route: 065
  4. NORVIR [Suspect]
     Active Substance: RITONAVIR
     Indication: HIV INFECTION
     Dosage: 100 MILLIGRAM DAILY;
     Route: 048
     Dates: start: 20100101, end: 20160720
  5. BETAGALEN [Concomitant]
     Indication: PRODUCT USED FOR UNKNOWN INDICATION
     Dosage: UNK
     Dates: start: 20120705
  6. BETAGALEN [Concomitant]
     Route: 065
  7. ATAZANAVIR SULFATE. [Suspect]
     Active Substance: ATAZANAVIR SULFATE
     Indication: HIV INFECTION
     Dosage: 300 MILLIGRAM DAILY;
     Route: 048
     Dates: start: 20100101, end: 20160720
  8. RITONAVIR. [Suspect]
     Active Substance: RITONAVIR
     Indication: HIV INFECTION
     Dosage: 100 MILLIGRAM DAILY;
     Route: 048
     Dates: start: 20100101, end: 20160720
  9. TELAPREVIR [Suspect]
     Active Substance: TELAPREVIR
     Indication: CHRONIC HEPATITIS C
     Dosage: 2250 MILLIGRAM DAILY;
     Route: 048
     Dates: start: 20120524, end: 20120816
  10. TELAPREVIR [Suspect]
     Active Substance: TELAPREVIR
     Route: 065
  11. RIBAVIRIN. [Suspect]
     Active Substance: RIBAVIRIN
     Indication: PRODUCT USED FOR UNKNOWN INDICATION
     Dosage: 800 MILLIGRAM DAILY;
     Route: 048
     Dates: start: 20120803, end: 20130425
  12. RIBAVIRIN. [Suspect]
     Active Substance: RIBAVIRIN
     Route: 048
  13. REYATAZ [Suspect]
     Active Substance: ATAZANAVIR SULFATE
     Indication: HEPATITIS C
  14. PEGINTERFERON ALFA?2A. [Suspect]
     Active Substance: PEGINTERFERON ALFA-2A
     Indication: CHRONIC HEPATITIS C
     Dosage: 180 UG, Q1WK
     Route: 058
     Dates: start: 20120524, end: 20130425
  15. CITALOPRAM [Concomitant]
     Active Substance: CITALOPRAM HYDROBROMIDE
     Dosage: UNK
     Dates: start: 20120621, end: 20130601
  16. AZITHROBETA [Concomitant]
     Active Substance: AZITHROMYCIN
     Indication: PRODUCT USED FOR UNKNOWN INDICATION
     Dosage: 500 MG, UNK
     Route: 065
     Dates: start: 20130603, end: 20130605
  17. ACC ACUTE [Concomitant]
     Indication: PRODUCT USED FOR UNKNOWN INDICATION
     Dosage: UNK
     Route: 065
     Dates: start: 20130314
  18. METAMIZOL                          /06276701/ [Concomitant]
     Active Substance: METAMIZOLE
     Indication: PRODUCT USED FOR UNKNOWN INDICATION
     Dosage: UNK
     Route: 065
     Dates: start: 20121221
  19. REYATAZ [Suspect]
     Active Substance: ATAZANAVIR SULFATE
     Indication: HIV INFECTION
     Dosage: 300 MILLIGRAM DAILY;
     Route: 048
     Dates: start: 20100101, end: 20160720
  20. RIBAVIRIN. [Suspect]
     Active Substance: RIBAVIRIN
     Indication: CHRONIC HEPATITIS C
     Dosage: 1000 MILLIGRAM DAILY;
     Route: 048
     Dates: start: 20120524, end: 20120802
  21. CITALOPRAM [Concomitant]
     Active Substance: CITALOPRAM HYDROBROMIDE
     Indication: PRODUCT USED FOR UNKNOWN INDICATION
     Dosage: 40 MG, UNK
     Dates: start: 20121220
  22. EMTRICITABINE/TENOFOVIR DISOPROXIL FUMARATE [Suspect]
     Active Substance: EMTRICITABINE\TENOFOVIR DISOPROXIL FUMARATE
     Indication: HIV INFECTION
     Dosage: 200 MILLIGRAM DAILY;
     Route: 048
     Dates: start: 20100101, end: 20160720

REACTIONS (27)
  - Withdrawal syndrome [Not Recovered/Not Resolved]
  - Oral herpes [Recovered/Resolved]
  - Dysgeusia [Not Recovered/Not Resolved]
  - Nausea [Recovered/Resolved]
  - Influenza like illness [Recovered/Resolved]
  - Depressed mood [Not Recovered/Not Resolved]
  - Pruritus [Recovering/Resolving]
  - Restlessness [Recovered/Resolved]
  - Pruritus [Recovered/Resolved]
  - Sinusitis [Recovered/Resolved]
  - Dry skin [Not Recovered/Not Resolved]
  - Impaired healing [Recovered/Resolved]
  - Headache [Recovered/Resolved]
  - Wrong dose [Unknown]
  - Drug dependence [Not Recovered/Not Resolved]
  - Dizziness [Recovered/Resolved]
  - Fatigue [Unknown]
  - Laboratory test abnormal [Unknown]
  - Vertigo [Recovered/Resolved]
  - Skin irritation [Not Recovered/Not Resolved]
  - Pruritus [Not Recovered/Not Resolved]
  - Alanine aminotransferase increased [Not Recovered/Not Resolved]
  - Pruritus [Not Recovered/Not Resolved]
  - Anaemia [Not Recovered/Not Resolved]
  - Pruritus [Recovering/Resolving]
  - Incorrect dose administered [Recovered/Resolved]
  - Fatigue [Recovered/Resolved]

NARRATIVE: CASE EVENT DATE: 20120524
